FAERS Safety Report 7433432-8 (Version None)
Quarter: 2011Q2

REPORT INFORMATION
  Report Type: 
  Country: None (occurrence: None)
  Receive Date: 20110422
  Receipt Date: 20110414
  Transmission Date: 20111010
  Serious: Yes (Death, Other)
  Sender: FDA-Public Use
  Company Number: SE-GENZYME-THYM-1002416

PATIENT
  Age: 16 Year
  Sex: Male

DRUGS (3)
  1. TRIMETHOPRIM + SULFAMETHOXAZOLE [Concomitant]
     Indication: ANTIFUNGAL PROPHYLAXIS
     Dosage: UNK
     Route: 065
  2. THYMOGLOBULIN [Suspect]
     Indication: BONE MARROW CONDITIONING REGIMEN
     Route: 042
  3. TACROLIMUS [Concomitant]
     Indication: PROPHYLAXIS
     Dosage: 0.04 MG/KG, QD
     Route: 042

REACTIONS (5)
  - HISTIOCYTOSIS HAEMATOPHAGIC [None]
  - EPSTEIN-BARR VIRUS TEST POSITIVE [None]
  - ACUTE GRAFT VERSUS HOST DISEASE IN SKIN [None]
  - RESPIRATORY FAILURE [None]
  - ADENOVIRUS INFECTION [None]
